FAERS Safety Report 17598990 (Version 3)
Quarter: 2020Q3

REPORT INFORMATION
  Report Type: Spontaneous
  Country: JP (occurrence: JP)
  Receive Date: 20200330
  Receipt Date: 20200827
  Transmission Date: 20201102
  Serious: Yes (Hospitalization, Other)
  Sender: FDA-Public Use
  Company Number: JP-SA-2020SA070881

PATIENT

DRUGS (5)
  1. PREDONINE [Concomitant]
     Active Substance: PREDNISOLONE
  2. GIMERACIL;OTERACIL POTASSIUM;TEGAFUR [Concomitant]
     Active Substance: GIMERACIL\OTERACIL\TEGAFUR
     Indication: GASTRIC CANCER
     Route: 048
  3. PREDNISOLONE ACETATE. [Concomitant]
     Active Substance: PREDNISOLONE ACETATE
  4. PREDNISOLONE. [Concomitant]
     Active Substance: PREDNISOLONE
     Indication: HYPERTENSION
     Dosage: MORNING 5 MG AT 2 MG AT NIGHT
     Route: 048
  5. OXALIPLATIN. [Suspect]
     Active Substance: OXALIPLATIN
     Indication: GASTRIC CANCER
     Dosage: UNK UNK, Q3W
     Route: 041

REACTIONS (12)
  - Condition aggravated [Recovering/Resolving]
  - CSF pressure increased [Recovered/Resolved]
  - Vomiting [Recovering/Resolving]
  - Inflammation [Recovering/Resolving]
  - Depressed level of consciousness [Recovering/Resolving]
  - Dysuria [Recovering/Resolving]
  - Meningitis cryptococcal [Recovering/Resolving]
  - Decreased appetite [Recovering/Resolving]
  - Giant cell arteritis [Recovering/Resolving]
  - Headache [Recovering/Resolving]
  - Pyrexia [Recovering/Resolving]
  - Hyponatraemia [Recovering/Resolving]
